FAERS Safety Report 7939174-4 (Version None)
Quarter: 2011Q4

REPORT INFORMATION
  Report Type: 
  Country: None (occurrence: None)
  Receive Date: 20111124
  Receipt Date: 20111114
  Transmission Date: 20120403
  Serious: Yes (Other)
  Sender: FDA-Public Use
  Company Number: JP-BRISTOL-MYERS SQUIBB COMPANY-16247900

PATIENT

DRUGS (1)
  1. CARBOPLATIN [Suspect]

REACTIONS (2)
  - CARDIOMYOPATHY [None]
  - CARDIAC FAILURE CONGESTIVE [None]
